FAERS Safety Report 20617492 (Version 1)
Quarter: 2022Q1

REPORT INFORMATION
  Report Type: Spontaneous
  Country: CO (occurrence: CO)
  Receive Date: 20220321
  Receipt Date: 20220321
  Transmission Date: 20220423
  Serious: Yes (Death, Hospitalization, Other)
  Sender: FDA-Public Use
  Company Number: CO-AMGEN-COLSP2022045060

PATIENT
  Age: 55 Year
  Sex: Male
  Weight: 55 kg

DRUGS (4)
  1. MVASI [Suspect]
     Active Substance: BEVACIZUMAB-AWWB
     Indication: Rectal cancer
     Dosage: 300 MILLIGRAM
     Route: 065
     Dates: start: 20210930, end: 20210930
  2. FLUOROURACIL [Concomitant]
     Active Substance: FLUOROURACIL
     Indication: Rectal cancer
     Dosage: 500 MILLIGRAM
     Dates: start: 20210930, end: 20210930
  3. FLUOROURACIL [Concomitant]
     Active Substance: FLUOROURACIL
     Dosage: 3000 MILLIGRAM
     Dates: start: 20210930, end: 20210930
  4. LEUCOVORIN CALCIUM [Concomitant]
     Active Substance: LEUCOVORIN CALCIUM
     Indication: Rectal cancer
     Dosage: 500 MILLIGRAM
     Dates: start: 20210930, end: 20210930

REACTIONS (6)
  - Abdominal sepsis [Fatal]
  - Anal cancer metastatic [Fatal]
  - Cancer pain [Fatal]
  - Pleural effusion [Unknown]
  - Lower gastrointestinal haemorrhage [Fatal]
  - Atelectasis [Unknown]

NARRATIVE: CASE EVENT DATE: 20211004
